FAERS Safety Report 5912902-5 (Version None)
Quarter: 2008Q4

REPORT INFORMATION
  Report Type: 
  Country: None (occurrence: None)
  Receive Date: 20081008
  Receipt Date: 20080923
  Transmission Date: 20090506
  Serious: Yes (Hospitalization)
  Sender: FDA-Public Use
  Company Number: FR-GENENTECH-268981

PATIENT
  Sex: Male

DRUGS (6)
  1. RITUXIMAB [Suspect]
     Indication: DIFFUSE LARGE B-CELL LYMPHOMA
     Dosage: 785 MG, UNK
     Route: 042
     Dates: start: 20080723
  2. CYCLOPHOSPHAMIDE [Suspect]
     Indication: NON-HODGKIN'S LYMPHOMA
     Dosage: 1570 MG, UNK
     Route: 043
     Dates: start: 20080623
  3. VINCRISTINE [Suspect]
     Indication: NON-HODGKIN'S LYMPHOMA
     Dosage: 2 MG, UNK
     Route: 042
     Dates: start: 20080723
  4. DOXORUBICIN HCL [Suspect]
     Indication: NON-HODGKIN'S LYMPHOMA
     Dosage: 105 MG, UNK
     Route: 042
     Dates: start: 20080723
  5. CORTANCYL [Suspect]
     Indication: NON-HODGKIN'S LYMPHOMA
     Dosage: 85 MG, UNK
     Route: 048
     Dates: start: 20080724
  6. SOLU-MEDROL [Suspect]
     Indication: NON-HODGKIN'S LYMPHOMA
     Dosage: 80 MG, UNK
     Route: 042
     Dates: start: 20080723

REACTIONS (1)
  - FEBRILE BONE MARROW APLASIA [None]
